FAERS Safety Report 18432492 (Version 3)
Quarter: 2020Q4

REPORT INFORMATION
  Report Type: Spontaneous
  Country: DE (occurrence: DE)
  Receive Date: 20201027
  Receipt Date: 20201203
  Transmission Date: 20210114
  Serious: Yes (Hospitalization)
  Sender: FDA-Public Use
  Company Number: DE-CELLTRION INC.-2020DE029556

PATIENT

DRUGS (9)
  1. REMSIMA [Suspect]
     Active Substance: INFLIXIMAB
     Indication: CROHN^S DISEASE
     Dosage: 300 UNK
     Route: 042
     Dates: start: 20200901
  2. REMSIMA [Suspect]
     Active Substance: INFLIXIMAB
     Indication: CROHN^S DISEASE
  3. REMSIMA [Suspect]
     Active Substance: INFLIXIMAB
     Indication: CROHN^S DISEASE
     Dosage: 300 MILLIGRAM
     Route: 042
     Dates: start: 20200812
  4. PREDNISOLONE. [Concomitant]
     Active Substance: PREDNISOLONE
     Dosage: 50 MG, 40 MG, 30 , 20 MG FOR 1 WEEK, THEN REDUCE WEEKLY BY 2.5 MG TO 10, THEN 1MG REDUCTION STEPS
     Dates: start: 20200820
  5. BUDENOFALK [Concomitant]
     Active Substance: BUDESONIDE
     Route: 048
  6. IMRALDI [Concomitant]
     Active Substance: ADALIMUMAB
     Indication: CROHN^S DISEASE
     Dosage: FROM 6TH WEEK
     Route: 058
  7. REMSIMA [Suspect]
     Active Substance: INFLIXIMAB
     Indication: CROHN^S DISEASE
     Dosage: UNK
     Route: 065
     Dates: start: 20200929
  8. CORTISON [Concomitant]
     Active Substance: CORTISONE ACETATE
     Indication: CROHN^S DISEASE
     Dosage: CORTISON IMPULSE THERAPY THEN I.V. EVERY 2 WEEKS
     Route: 042
  9. PREDNISOLONE. [Concomitant]
     Active Substance: PREDNISOLONE
     Indication: PRODUCT USED FOR UNKNOWN INDICATION
     Dosage: 2.5 MILLIGRAM

REACTIONS (1)
  - Rhabdomyolysis [Recovered/Resolved]
